FAERS Safety Report 4425066-4 (Version None)
Quarter: 2004Q3

REPORT INFORMATION
  Report Type: 
  Country: None (occurrence: None)
  Receive Date: 20040811
  Receipt Date: 20040811
  Transmission Date: 20050211
  Serious: Yes (Death)
  Sender: FDA-Public Use
  Company Number: None

PATIENT
  Age: 75 Year
  Sex: Female
  Weight: 61.2 kg

DRUGS (1)
  1. GEMZAR [Suspect]
     Indication: PANCREATIC CARCINOMA
     Dosage: 562.5MG/M2   QWX31WK O   INTRAVENOUS
     Route: 042
     Dates: start: 20040323, end: 20040713

REACTIONS (7)
  - ABDOMINAL PAIN [None]
  - ANOREXIA [None]
  - DISEASE PROGRESSION [None]
  - DYSPNOEA [None]
  - HEPATORENAL SYNDROME [None]
  - INTESTINAL OBSTRUCTION [None]
  - VOMITING [None]
